FAERS Safety Report 10203267 (Version 2)
Quarter: 2014Q3

REPORT INFORMATION
  Report Type: Spontaneous
  Country: US (occurrence: US)
  Receive Date: 20140529
  Receipt Date: 20140717
  Transmission Date: 20150326
  Serious: Yes (Other)
  Sender: FDA-Public Use
  Company Number: US-ROCHE-1408107

PATIENT
  Age: 63 Year
  Sex: Female

DRUGS (2)
  1. SOVALDI [Suspect]
     Active Substance: SOFOSBUVIR
     Indication: HEPATITIS C
     Route: 065
     Dates: start: 20140320, end: 20140407
  2. RIBAVIRIN. [Suspect]
     Active Substance: RIBAVIRIN
     Indication: HEPATITIS C
     Route: 065
     Dates: start: 20140320, end: 20140407

REACTIONS (9)
  - Dermatitis exfoliative [Recovering/Resolving]
  - Eosinophilia [Recovered/Resolved]
  - Lip exfoliation [Recovering/Resolving]
  - Dyspnoea [Recovering/Resolving]
  - Stevens-Johnson syndrome [Recovering/Resolving]
  - Mouth ulceration [Recovering/Resolving]
  - Fatigue [Recovering/Resolving]
  - Dizziness [Recovering/Resolving]
  - Haemoglobin decreased [Recovering/Resolving]

NARRATIVE: CASE EVENT DATE: 20140403
